FAERS Safety Report 14385915 (Version 3)
Quarter: 2018Q1

REPORT INFORMATION
  Report Type: Spontaneous
  Country: IT (occurrence: IT)
  Receive Date: 20180115
  Receipt Date: 20180212
  Transmission Date: 20180509
  Serious: Yes (Death, Other)
  Sender: FDA-Public Use
  Company Number: IT-GILEAD-2018-0315432

PATIENT
  Age: 82 Year
  Sex: Male

DRUGS (11)
  1. EPCLUSA [Suspect]
     Active Substance: SOFOSBUVIR\VELPATASVIR
     Indication: HEPATIC CIRRHOSIS
     Dosage: 1 DF, QD
     Route: 048
     Dates: start: 20170614, end: 20170808
  2. FUROSEMIDE. [Concomitant]
     Active Substance: FUROSEMIDE
  3. RAMIPRIL. [Concomitant]
     Active Substance: RAMIPRIL
  4. CANRENONE [Concomitant]
     Active Substance: CANRENONE
  5. BISOPROLOL HEMIFUMARATE [Concomitant]
     Active Substance: BISOPROLOL FUMARATE
  6. VILANTEROL TRIFENATATE [Concomitant]
     Active Substance: VILANTEROL TRIFENATATE
  7. RAMIPRIL. [Concomitant]
     Active Substance: RAMIPRIL
  8. FLUTICASONE. [Concomitant]
     Active Substance: FLUTICASONE
  9. CANRENONE [Concomitant]
     Active Substance: CANRENONE
  10. FUROSEMIDE. [Concomitant]
     Active Substance: FUROSEMIDE
  11. ASAPRIN CARDIO [Concomitant]
     Dosage: UNK

REACTIONS (2)
  - Acute kidney injury [Fatal]
  - Lichenoid keratosis [Fatal]

NARRATIVE: CASE EVENT DATE: 20170808
